FAERS Safety Report 9816238 (Version 3)
Quarter: 2014Q4

REPORT INFORMATION
  Report Type: Spontaneous
  Country: US (occurrence: US)
  Receive Date: 20140114
  Receipt Date: 20141222
  Transmission Date: 20150529
  Serious: Yes (Death, Life-Threatening, Hospitalization, Other)
  Sender: FDA-Public Use
  Company Number: US-009507513-1401USA003576

PATIENT
  Sex: Female
  Weight: 95.24 kg

DRUGS (4)
  1. GLYBURIDE. [Suspect]
     Active Substance: GLYBURIDE
     Indication: TYPE 2 DIABETES MELLITUS
     Dosage: 10 MG, BID
  2. NOVOLOG [Concomitant]
     Active Substance: INSULIN ASPART
     Indication: TYPE 2 DIABETES MELLITUS
     Dosage: SLIDING SCALE
  3. NOVOLOG [Concomitant]
     Active Substance: INSULIN ASPART
     Dosage: 70/30 BID
  4. JANUVIA [Suspect]
     Active Substance: SITAGLIPTIN PHOSPHATE
     Indication: TYPE 2 DIABETES MELLITUS
     Dosage: 100 MG, QD
     Route: 048
     Dates: start: 20080723, end: 20100212

REACTIONS (30)
  - Rhinorrhoea [Unknown]
  - Constipation [Unknown]
  - Pancreatic carcinoma [Fatal]
  - Chronic obstructive pulmonary disease [Unknown]
  - Hypertension [Unknown]
  - Headache [Unknown]
  - Renal cyst [Unknown]
  - Diverticulum [Unknown]
  - Hiatus hernia [Unknown]
  - Blood albumin decreased [Unknown]
  - Gallbladder disorder [Unknown]
  - Tooth loss [Unknown]
  - Heart rate increased [Unknown]
  - Escherichia urinary tract infection [Unknown]
  - Pancreatic carcinoma metastatic [Unknown]
  - Diabetic retinopathy [Unknown]
  - Oedema [Unknown]
  - Drug ineffective [Unknown]
  - Palpitations [Unknown]
  - Metastases to liver [Unknown]
  - Bladder cancer [Unknown]
  - Iron deficiency [Unknown]
  - Cardiac failure congestive [Unknown]
  - Nasal congestion [Unknown]
  - Pancreatitis [Unknown]
  - Chronic sinusitis [Not Recovered/Not Resolved]
  - Osteoarthritis [Unknown]
  - Renal cyst [Unknown]
  - Osteoporosis [Unknown]
  - Dyspnoea [Unknown]

NARRATIVE: CASE EVENT DATE: 201007
